FAERS Safety Report 14967646 (Version 1)
Quarter: 2018Q2

REPORT INFORMATION
  Report Type: Spontaneous
  Country: US (occurrence: US)
  Receive Date: 20180604
  Receipt Date: 20180604
  Transmission Date: 20180711
  Serious: Yes (Death, Other)
  Sender: FDA-Public Use
  Company Number: US-ZYDUS-020295

PATIENT
  Age: 76 Year
  Sex: Female

DRUGS (4)
  1. CEFTRIAXONE. [Suspect]
     Active Substance: CEFTRIAXONE
     Indication: PNEUMONIA
     Route: 065
  2. LEVOFLOXACIN. [Suspect]
     Active Substance: LEVOFLOXACIN
     Indication: ANTIBIOTIC THERAPY
     Route: 065
  3. AZITHROMYCIN ANHYDROUS. [Suspect]
     Active Substance: AZITHROMYCIN ANHYDROUS
     Indication: PNEUMONIA
     Route: 065
  4. MEROPENEM. [Suspect]
     Active Substance: MEROPENEM
     Indication: PNEUMONIA
     Route: 065

REACTIONS (10)
  - Headache [Unknown]
  - Subdural haematoma [Fatal]
  - Confusional state [Unknown]
  - Haemorrhage intracranial [Fatal]
  - Brain herniation [Fatal]
  - Intra-abdominal haematoma [Unknown]
  - Muscular weakness [Unknown]
  - Factor V inhibition [Fatal]
  - Condition aggravated [Unknown]
  - Coagulation time prolonged [Unknown]
